FAERS Safety Report 10412619 (Version 1)
Quarter: 2014Q3

REPORT INFORMATION
  Report Type: Spontaneous
  Country: US (occurrence: None)
  Receive Date: 20140826
  Receipt Date: 20140826
  Transmission Date: 20150326
  Serious: No
  Sender: FDA-Public Use
  Company Number: None

PATIENT
  Age: 45 Year
  Sex: Male
  Weight: 108.86 kg

DRUGS (1)
  1. LISINOPRIL. [Suspect]
     Active Substance: LISINOPRIL
     Indication: BLOOD PRESSURE INCREASED
     Dosage: 1 PILL, ONCE DAILY, TAKEN BY MOUTH
     Route: 048
     Dates: start: 20140808, end: 20140825

REACTIONS (6)
  - Bladder pain [None]
  - Male sexual dysfunction [None]
  - Drug interaction [None]
  - Urinary incontinence [None]
  - Pollakiuria [None]
  - Ejaculation disorder [None]

NARRATIVE: CASE EVENT DATE: 20140815
